FAERS Safety Report 9241822 (Version 1)
Quarter: 2013Q2

REPORT INFORMATION
  Report Type: Spontaneous
  Country: FR (occurrence: FR)
  Receive Date: 20130419
  Receipt Date: 20130419
  Transmission Date: 20140414
  Serious: Yes (Other)
  Sender: FDA-Public Use
  Company Number: FR-JNJFOC-20130408262

PATIENT
  Age: 78 Year
  Sex: Female

DRUGS (7)
  1. XARELTO [Suspect]
     Indication: CEREBROVASCULAR ACCIDENT PROPHYLAXIS
     Route: 048
     Dates: start: 20121015, end: 20130225
  2. XARELTO [Suspect]
     Indication: ATRIAL FIBRILLATION
     Route: 048
     Dates: start: 20121015, end: 20130225
  3. PERINDOPRIL [Concomitant]
     Route: 065
  4. KEPPRA [Concomitant]
     Route: 065
     Dates: end: 201301
  5. CRESTOR [Concomitant]
     Route: 065
  6. KARDEGIC [Concomitant]
     Route: 065
  7. SOTALEX [Concomitant]
     Route: 065

REACTIONS (2)
  - Anaemia [Recovered/Resolved]
  - Asthenia [Unknown]
